FAERS Safety Report 18480856 (Version 1)
Quarter: 2020Q4

REPORT INFORMATION
  Report Type: Spontaneous
  Country: NP (occurrence: NP)
  Receive Date: 20201109
  Receipt Date: 20201109
  Transmission Date: 20210114
  Serious: Yes (Other)
  Sender: FDA-Public Use
  Company Number: NP-VIRTUS PHARMACEUTICALS, LLC-2020VTS00081

PATIENT
  Age: 43 Year
  Sex: Male

DRUGS (5)
  1. DAPSONE. [Suspect]
     Active Substance: DAPSONE
     Indication: TUBERCULOID LEPROSY
     Dosage: 100 MG, 1X/DAY
     Route: 065
  2. AMLODIPINE [Concomitant]
     Active Substance: AMLODIPINE BESYLATE
     Indication: HYPERTENSION
     Dosage: UNK, 1X/DAY
     Route: 065
  3. METFORMIN [Concomitant]
     Active Substance: METFORMIN HYDROCHLORIDE
     Indication: DIABETES MELLITUS
     Dosage: 500 MG
     Route: 065
  4. CLOFAZIMINE [Concomitant]
     Active Substance: CLOFAZIMINE
     Indication: TUBERCULOID LEPROSY
     Route: 065
  5. RIFAMPICIN [Concomitant]
     Active Substance: RIFAMPIN
     Indication: TUBERCULOID LEPROSY
     Route: 065

REACTIONS (2)
  - Optic atrophy [Not Recovered/Not Resolved]
  - Blindness [Not Recovered/Not Resolved]
